FAERS Safety Report 10633280 (Version 1)
Quarter: 2014Q4

REPORT INFORMATION
  Report Type: Spontaneous
  Country: IN (occurrence: None)
  Receive Date: 20141203
  Receipt Date: 20141203
  Transmission Date: 20150529
  Serious: Yes (Life-Threatening, Hospitalization)
  Sender: FDA-Public Use
  Company Number: IN-ALKEM-000773

PATIENT
  Age: 69 Year
  Sex: Male

DRUGS (6)
  1. AMLODIPINE [Suspect]
     Active Substance: AMLODIPINE BESYLATE
     Dosage: 50.00000000 MG
  2. CLOPIDOGREL [Concomitant]
     Active Substance: CLOPIDOGREL BISULFATE
  3. GLIMEPIRIDE (GLIMEPIRIDE) [Concomitant]
     Active Substance: GLIMEPIRIDE
  4. SITAGLIPTIN (SITAGLIPTIN) [Concomitant]
     Active Substance: SITAGLIPTIN
  5. LERCANIDIPINE (LERCANIDIPINE) [Suspect]
     Active Substance: LERCANIDIPINE
     Dosage: 300.00000000 MG
  6. ECOSPRIN (ECOSPRIN) [Concomitant]

REACTIONS (8)
  - Overdose [None]
  - Bradycardia [None]
  - Cardiac arrest [None]
  - Anxiety [None]
  - Metabolic acidosis [None]
  - Cardiogenic shock [None]
  - Bundle branch block right [None]
  - Respiratory alkalosis [None]
